FAERS Safety Report 10200865 (Version 3)
Quarter: 2014Q3

REPORT INFORMATION
  Report Type: Spontaneous
  Country: JP (occurrence: JP)
  Receive Date: 20140528
  Receipt Date: 20140908
  Transmission Date: 20150326
  Serious: Yes (Life-Threatening, Hospitalization)
  Sender: FDA-Public Use
  Company Number: JP-JNJFOC-20140511883

PATIENT
  Age: 80 Year
  Sex: Male

DRUGS (9)
  1. XARELTO [Suspect]
     Active Substance: RIVAROXABAN
     Indication: ATRIAL FIBRILLATION
     Route: 048
     Dates: start: 20140409, end: 20140426
  2. MAGMITT [Concomitant]
     Active Substance: MAGNESIUM OXIDE
     Route: 048
  3. XARELTO [Suspect]
     Active Substance: RIVAROXABAN
     Indication: CEREBROVASCULAR ACCIDENT PROPHYLAXIS
     Route: 048
     Dates: start: 20140409, end: 20140426
  4. TAKEPRON [Concomitant]
     Active Substance: LANSOPRAZOLE
     Route: 048
  5. ADALAT CC [Concomitant]
     Active Substance: NIFEDIPINE
     Route: 048
  6. MAINTATE [Concomitant]
     Active Substance: BISOPROLOL FUMARATE
     Route: 048
  7. RENIVACE [Concomitant]
     Active Substance: ENALAPRIL
     Route: 048
  8. METFORMIN HYDROCHLORIDE. [Concomitant]
     Active Substance: METFORMIN HYDROCHLORIDE
     Route: 048
  9. AMARYL [Concomitant]
     Active Substance: GLIMEPIRIDE
     Route: 048

REACTIONS (1)
  - Interstitial lung disease [Recovered/Resolved]

NARRATIVE: CASE EVENT DATE: 20140417
